FAERS Safety Report 9824094 (Version 3)
Quarter: 2015Q3

REPORT INFORMATION
  Report Type: Spontaneous
  Country: US (occurrence: US)
  Receive Date: 20140116
  Receipt Date: 20150807
  Transmission Date: 20151125
  Serious: No
  Sender: FDA-Public Use
  Company Number: US-GILEAD-2011-0037789

PATIENT
  Age: 57 Year
  Sex: Female

DRUGS (1)
  1. LETAIRIS [Suspect]
     Active Substance: AMBRISENTAN
     Indication: PULMONARY HYPERTENSION
     Route: 048
     Dates: start: 20101006

REACTIONS (5)
  - Local swelling [Unknown]
  - Limb injury [Unknown]
  - Burning sensation [Unknown]
  - Lymphadenopathy [Not Recovered/Not Resolved]
  - Lymph node pain [Unknown]

NARRATIVE: CASE EVENT DATE: 201103
